FAERS Safety Report 8418715-7 (Version None)
Quarter: 2012Q2

REPORT INFORMATION
  Report Type: 
  Country: None (occurrence: None)
  Receive Date: 20120607
  Receipt Date: 20120601
  Transmission Date: 20120825
  Serious: Yes (Life-Threatening, Hospitalization)
  Sender: FDA-Public Use
  Company Number: US-ASTRAZENECA-2012SE13732

PATIENT
  Age: 47 Year
  Sex: Female

DRUGS (3)
  1. MEDICATIONS FOR DIABETES [Concomitant]
     Indication: DIABETES MELLITUS
  2. MEDICATIONS FOR HEART [Concomitant]
     Indication: CARDIAC DISORDER
  3. SEROQUEL [Suspect]
     Indication: BIPOLAR DISORDER
     Route: 048
     Dates: start: 20100101

REACTIONS (5)
  - COMA [None]
  - CARDIAC FAILURE CONGESTIVE [None]
  - PANIC REACTION [None]
  - MOOD SWINGS [None]
  - DRUG DOSE OMISSION [None]
